FAERS Safety Report 9587450 (Version 1)
Quarter: 2013Q4

REPORT INFORMATION
  Report Type: Report from Study
  Country: US (occurrence: US)
  Receive Date: 20131003
  Receipt Date: 20131003
  Transmission Date: 20140711
  Serious: Yes (Congenital Anomaly)
  Sender: FDA-Public Use
  Company Number: US-ABBVIE-13P-163-1151957-00

PATIENT
  Sex: 0

DRUGS (5)
  1. NORVIR [Suspect]
     Indication: MATERNAL EXPOSURE TIMING UNSPECIFIED
     Route: 064
  2. DARUNAVIR [Suspect]
     Indication: MATERNAL EXPOSURE TIMING UNSPECIFIED
     Route: 064
  3. TENOFOVIR DISOPROXIL FUMARATE [Suspect]
     Indication: MATERNAL EXPOSURE TIMING UNSPECIFIED
     Route: 064
  4. RALTEGRAVIR [Suspect]
     Indication: MATERNAL EXPOSURE TIMING UNSPECIFIED
     Route: 064
  5. ABACAVIR SULFATE\LAMIVUDINE\ZIDOVUDINE [Suspect]
     Indication: MATERNAL EXPOSURE TIMING UNSPECIFIED
     Route: 064

REACTIONS (4)
  - Spine malformation [Unknown]
  - Foetal exposure during pregnancy [Unknown]
  - Oesophageal atresia [Unknown]
  - Hemivertebra [Unknown]
